FAERS Safety Report 5038883-7 (Version None)
Quarter: 2006Q2

REPORT INFORMATION
  Report Type: 
  Country: None (occurrence: None)
  Receive Date: 20060629
  Receipt Date: 20060622
  Transmission Date: 20061013
  Serious: Yes (Hospitalization)
  Sender: FDA-Public Use
  Company Number: US-JNJFOC-20060605923

PATIENT
  Sex: Male

DRUGS (1)
  1. ORTHOCLONE OKT3 [Suspect]
     Indication: LIVER TRANSPLANT

REACTIONS (2)
  - LIVER FUNCTION TEST ABNORMAL [None]
  - NEUTROPENIA [None]
